FAERS Safety Report 12288393 (Version 1)
Quarter: 2016Q2

REPORT INFORMATION
  Report Type: Spontaneous
  Country: GB (occurrence: GB)
  Receive Date: 20160420
  Receipt Date: 20160420
  Transmission Date: 20160815
  Serious: Yes (Other)
  Sender: FDA-Public Use
  Company Number: GB-ASTRAZENECA-2016SE39772

PATIENT
  Age: 64 Year
  Sex: Male

DRUGS (2)
  1. TAXOTERE [Concomitant]
     Active Substance: DOCETAXEL
     Dates: start: 201507, end: 201511
  2. ZOLADEX [Suspect]
     Active Substance: GOSERELIN ACETATE
     Indication: PROSTATE CANCER
     Route: 058
     Dates: start: 2007, end: 2012

REACTIONS (2)
  - Pancreatic carcinoma [Unknown]
  - Pancreatic insufficiency [Unknown]

NARRATIVE: CASE EVENT DATE: 2010
